FAERS Safety Report 9780881 (Version 2)
Quarter: 2013Q4

REPORT INFORMATION
  Report Type: Report from Study
  Country: US (occurrence: US)
  Receive Date: 20131224
  Receipt Date: 20131224
  Transmission Date: 20140711
  Serious: Yes (Hospitalization)
  Sender: FDA-Public Use
  Company Number: PHHO2012US015355

PATIENT
  Age: 51 Year
  Sex: Female
  Weight: 139 kg

DRUGS (16)
  1. SOM230 [Suspect]
     Indication: ACROMEGALY
     Dosage: 60 MG, UNK
     Route: 030
     Dates: start: 20120531
  2. VICTOZA [Suspect]
     Indication: BLOOD GLUCOSE INCREASED
     Dosage: 1.2 MG, QD
     Route: 058
     Dates: start: 20120928, end: 20121012
  3. VICTOZA [Suspect]
     Dosage: 1.8 MG, QD
     Route: 058
     Dates: start: 20121013, end: 20121021
  4. HUMULIN N [Concomitant]
     Indication: HYPERGLYCAEMIA
     Dosage: 30 MG, BID
     Route: 058
     Dates: start: 20121013, end: 20121021
  5. PRADAXA [Concomitant]
  6. CLONAZEPAM [Concomitant]
     Dosage: 1 MG, Q8H
     Route: 048
  7. VIMPAT [Concomitant]
     Dosage: 150 MG, BID
     Route: 048
  8. LISINOPRIL [Concomitant]
     Dosage: 20 MG, QD
     Route: 048
  9. MAGNESIUM [Concomitant]
     Dosage: 200 MG, QD
     Route: 048
  10. METFORMIN [Concomitant]
     Dosage: 1000 MG, BID
     Route: 048
     Dates: start: 20090501, end: 20121021
  11. LANTUS [Concomitant]
     Indication: DIABETES MELLITUS
     Dosage: 60 MG, QD
     Route: 058
     Dates: start: 20120928, end: 20121012
  12. BECLOMETHASONE [Concomitant]
  13. OXYCODONE [Concomitant]
     Dosage: 5 MG, Q6H
  14. ANTIHYPERTENSIVE DRUGS [Concomitant]
  15. LIRAGLUTIDE [Concomitant]
  16. INSULIN ISOPHANE [Concomitant]

REACTIONS (2)
  - Hyperglycaemia [Recovered/Resolved]
  - Abdominal abscess [Recovered/Resolved]
